FAERS Safety Report 22981960 (Version 2)
Quarter: 2023Q4

REPORT INFORMATION
  Report Type: Other
  Country: US (occurrence: US)
  Receive Date: 20230926
  Receipt Date: 20231010
  Transmission Date: 20240109
  Serious: Yes (Other)
  Sender: FDA-Public Use
  Company Number: US-ALVOGEN-2023092303

PATIENT
  Age: 65 Year
  Sex: Male

DRUGS (1)
  1. MINOCYCLINE [Suspect]
     Active Substance: MINOCYCLINE HYDROCHLORIDE
     Indication: Hidradenitis
     Dosage: 100 MG TWICE DAILY, FOR A TOTAL DURATION OF FOUR YEARS.

REACTIONS (2)
  - Ochronosis [Not Recovered/Not Resolved]
  - Off label use [Unknown]
